FAERS Safety Report 25797765 (Version 1)
Quarter: 2025Q3

REPORT INFORMATION
  Report Type: Spontaneous
  Country: US (occurrence: US)
  Receive Date: 20250912
  Receipt Date: 20250912
  Transmission Date: 20251021
  Serious: No
  Sender: BIOGEN
  Company Number: US-BIOGEN-2024BI01262686

PATIENT
  Sex: Female

DRUGS (2)
  1. VUMERITY [Suspect]
     Active Substance: DIROXIMEL FUMARATE
     Indication: Multiple sclerosis
     Route: 050
     Dates: start: 20220208
  2. VUMERITY [Suspect]
     Active Substance: DIROXIMEL FUMARATE
     Dosage: 1 TABLET TWICE A DAY
     Route: 050
     Dates: start: 202403

REACTIONS (8)
  - Ligament sprain [Not Recovered/Not Resolved]
  - Tearfulness [Recovered/Resolved with Sequelae]
  - Fall [Recovered/Resolved]
  - COVID-19 [Recovered/Resolved]
  - Lymphocyte count decreased [Unknown]
  - Pruritus [Unknown]
  - Feeling hot [Unknown]
  - Hot flush [Recovered/Resolved with Sequelae]

NARRATIVE: CASE EVENT DATE: 20240101
